FAERS Safety Report 11944997 (Version 3)
Quarter: 2016Q1

REPORT INFORMATION
  Report Type: Report from Study
  Country: BR (occurrence: BR)
  Receive Date: 20160125
  Receipt Date: 20160316
  Transmission Date: 20160526
  Serious: Yes (Hospitalization, Other)
  Sender: FDA-Public Use
  Company Number: PHHY2016BR008366

PATIENT
  Sex: Female
  Weight: 65 kg

DRUGS (1)
  1. EXJADE [Suspect]
     Active Substance: DEFERASIROX
     Indication: APLASIA PURE RED CELL
     Dosage: 25 MG/KG, QD (3 DF OF 500 MG)
     Route: 048
     Dates: start: 2005

REACTIONS (9)
  - Abdominal infection [Recovered/Resolved]
  - Renal cyst [Unknown]
  - Renal failure [Unknown]
  - Hypothyroidism [Unknown]
  - Ovarian cyst [Recovered/Resolved]
  - Intestinal cyst [Unknown]
  - Uterine mass [Unknown]
  - Malaise [Not Recovered/Not Resolved]
  - Diabetes mellitus [Unknown]

NARRATIVE: CASE EVENT DATE: 2013
